FAERS Safety Report 6435799-6 (Version None)
Quarter: 2009Q4

REPORT INFORMATION
  Report Type: 
  Country: None (occurrence: None)
  Receive Date: 20091111
  Receipt Date: 20091105
  Transmission Date: 20100525
  Serious: Yes (Death, Hospitalization)
  Sender: FDA-Public Use
  Company Number: JP-BAYER-200913635BYL

PATIENT
  Age: 71 Year
  Sex: Male

DRUGS (7)
  1. NEXAVAR [Suspect]
     Indication: HEPATIC NEOPLASM MALIGNANT
     Dosage: TOTAL DAILY DOSE: 400 MG  UNIT DOSE: 200 MG
     Route: 048
     Dates: start: 20090824
  2. NEXAVAR [Suspect]
     Dosage: TOTAL DAILY DOSE: 400 MG  UNIT DOSE: 200 MG
     Route: 048
     Dates: start: 20091001, end: 20091003
  3. OXYCONTIN [Concomitant]
     Indication: ABDOMINAL PAIN
     Dosage: TOTAL DAILY DOSE: 45 MG
     Route: 048
     Dates: start: 20090828
  4. OXYCONTIN [Concomitant]
     Route: 048
     Dates: start: 20090915
  5. OXYCONTIN [Concomitant]
     Route: 048
  6. SANDOSTATIN [Concomitant]
     Indication: ILEUS
     Route: 065
     Dates: start: 20090922, end: 20090929
  7. FRESH FROZEN PLASMA [Concomitant]
     Indication: DISSEMINATED INTRAVASCULAR COAGULATION
     Route: 042
     Dates: start: 20091005

REACTIONS (4)
  - ALTERED STATE OF CONSCIOUSNESS [None]
  - ARTERIAL THROMBOSIS LIMB [None]
  - PLATELET COUNT DECREASED [None]
  - RASH [None]
